FAERS Safety Report 21239463 (Version 1)
Quarter: 2022Q3

REPORT INFORMATION
  Report Type: Spontaneous
  Country: US (occurrence: US)
  Receive Date: 20220822
  Receipt Date: 20220822
  Transmission Date: 20221027
  Serious: Yes (Hospitalization)
  Sender: FDA-Public Use
  Company Number: US-Zogenix International Limited, A wholly owned subsidiary of Zogenix, Inc.-2022ZX000992

PATIENT
  Age: 14 Year
  Sex: Female

DRUGS (2)
  1. FINTEPLA [Suspect]
     Active Substance: FENFLURAMINE
     Indication: Product used for unknown indication
     Route: 048
     Dates: start: 20210209
  2. FINTEPLA [Suspect]
     Active Substance: FENFLURAMINE
     Dosage: CURRENTLY AT 2.6 ML BID 7 DOSES, THEN 1.7 ML BID 10 DOSES, THEN 0.8 ML BID 10 DOSES, THEN STOP
     Route: 048

REACTIONS (2)
  - Pneumonia [Unknown]
  - Tachycardia [Not Recovered/Not Resolved]

NARRATIVE: CASE EVENT DATE: 20220714
